APPROVED DRUG PRODUCT: LOVASTATIN
Active Ingredient: LOVASTATIN
Strength: 20MG
Dosage Form/Route: TABLET;ORAL
Application: A075991 | Product #002 | TE Code: AB
Applicant: CARLSBAD TECHNOLOGY INC
Approved: Jun 5, 2002 | RLD: No | RS: No | Type: RX